FAERS Safety Report 9769331 (Version 2)
Quarter: 2014Q1

REPORT INFORMATION
  Report Type: Report from Study
  Country: AU (occurrence: AU)
  Receive Date: 20131218
  Receipt Date: 20140207
  Transmission Date: 20141002
  Serious: Yes (Other)
  Sender: FDA-Public Use
  Company Number: PHHY2013AU147027

PATIENT
  Age: 58 Year
  Sex: Male

DRUGS (2)
  1. ACLASTA [Suspect]
     Dosage: 5 MG, UNK
     Route: 042
     Dates: start: 20111229
  2. ACLASTA [Suspect]
     Dosage: 5 MG, UNK
     Route: 042

REACTIONS (9)
  - Gamma-glutamyltransferase increased [Unknown]
  - Blood urea decreased [Unknown]
  - Blood creatinine decreased [Unknown]
  - Blood albumin decreased [Unknown]
  - Globulins increased [Unknown]
  - Aspartate aminotransferase increased [Unknown]
  - Blood alkaline phosphatase increased [Unknown]
  - Mean cell haemoglobin concentration increased [Unknown]
  - Alpha 2 globulin increased [Unknown]
